FAERS Safety Report 19742519 (Version 1)
Quarter: 2021Q3

REPORT INFORMATION
  Report Type: Spontaneous
  Country: US (occurrence: US)
  Receive Date: 20210824
  Receipt Date: 20210824
  Transmission Date: 20211014
  Serious: No
  Sender: FDA-Public Use
  Company Number: US-BRECKENRIDGE PHARMACEUTICAL, INC.-2115587

PATIENT
  Age: 66 Year
  Sex: Male

DRUGS (1)
  1. RIVASTIGMINE TRANSDERMAL SYSTEM [Suspect]
     Active Substance: RIVASTIGMINE
     Indication: DEMENTIA ALZHEIMER^S TYPE
     Route: 062

REACTIONS (6)
  - Therapeutic product effect decreased [Unknown]
  - Abnormal behaviour [Unknown]
  - Pruritus [Unknown]
  - Confusional state [Unknown]
  - Application site erythema [Unknown]
  - Skin irritation [Unknown]
